FAERS Safety Report 6673990-4 (Version None)
Quarter: 2010Q2

REPORT INFORMATION
  Report Type: 
  Country: None (occurrence: None)
  Receive Date: 20100407
  Receipt Date: 20100324
  Transmission Date: 20101027
  Serious: Yes (Hospitalization)
  Sender: FDA-Public Use
  Company Number: KV200800377

PATIENT
  Age: 78 Year
  Sex: Male
  Weight: 74.8 kg

DRUGS (11)
  1. MORPHINE SULFATE [Suspect]
     Indication: PAIN
     Dosage: 30 MG, TID, ORAL
     Route: 048
     Dates: start: 20080901, end: 20081001
  2. MORPHINE SULFATE [Suspect]
     Indication: SPINAL COLUMN STENOSIS
     Dosage: 30 MG, TID, ORAL
     Route: 048
     Dates: start: 20080901, end: 20081001
  3. MORPHINE SULFATE [Suspect]
     Indication: BACK PAIN
     Dosage: 30 MG, BID, ORAL
     Route: 048
     Dates: start: 20081201, end: 20090923
  4. LOPRESSOR (METOPROLOL TRATRATE) [Concomitant]
  5. COUMADIN [Concomitant]
  6. AMITRIPTYLINE HYDROCHLORIDE [Concomitant]
  7. ADVAIR DISKUS 100/50 [Concomitant]
  8. PERCOCET [Concomitant]
  9. XANAX [Concomitant]
  10. COREG [Concomitant]
  11. RANEXA [Concomitant]

REACTIONS (42)
  - ANAEMIA [None]
  - ANXIETY [None]
  - ASTHENIA [None]
  - ASTHMA [None]
  - BLOOD LACTATE DEHYDROGENASE INCREASED [None]
  - BLOOD TEST ABNORMAL [None]
  - BRADYARRHYTHMIA [None]
  - BRONCHIECTASIS [None]
  - CARDIAC FAILURE CONGESTIVE [None]
  - CONDITION AGGRAVATED [None]
  - DIZZINESS [None]
  - DYSPNOEA [None]
  - DYSPNOEA EXERTIONAL [None]
  - DYSTHYMIC DISORDER [None]
  - GENERAL PHYSICAL HEALTH DETERIORATION [None]
  - HYPOTENSION [None]
  - HYPOXIA [None]
  - INCORRECT DOSE ADMINISTERED [None]
  - INFLAMMATION [None]
  - INSOMNIA [None]
  - LETHARGY [None]
  - LUNG DISORDER [None]
  - LUNG NEOPLASM [None]
  - METASTASES TO LIVER [None]
  - MITRAL VALVE DISEASE [None]
  - NEPHROLITHIASIS [None]
  - POST PROCEDURAL HAEMORRHAGE [None]
  - PRESYNCOPE [None]
  - PRODUCT FORMULATION ISSUE [None]
  - PRODUCT QUALITY ISSUE [None]
  - PRODUCT SUBSTITUTION ISSUE [None]
  - RENAL CELL CARCINOMA STAGE II [None]
  - RENAL CELL CARCINOMA STAGE IV [None]
  - RENAL CYST [None]
  - RENAL HAEMATOMA [None]
  - RENAL MASS [None]
  - RESPIRATORY DISTRESS [None]
  - RETROPERITONEAL HAEMORRHAGE [None]
  - SEDATION [None]
  - SOMNOLENCE [None]
  - TRANSAMINASES INCREASED [None]
  - TRICUSPID VALVE DISEASE [None]
